FAERS Safety Report 9396250 (Version 1)
Quarter: 2013Q3

REPORT INFORMATION
  Report Type: Spontaneous
  Country: US (occurrence: US)
  Receive Date: 20130711
  Receipt Date: 20130711
  Transmission Date: 20140515
  Serious: Yes (Hospitalization, Other)
  Sender: FDA-Public Use
  Company Number: US-009507513-1107USA00199

PATIENT
  Sex: Female

DRUGS (6)
  1. FOSAMAX [Suspect]
     Indication: OSTEOPOROSIS
     Dosage: 70 MG, QW
     Route: 048
     Dates: start: 200001, end: 20110702
  2. FOSAMAX [Suspect]
     Dosage: 35 MG, UNK
     Route: 048
     Dates: start: 200001, end: 20110702
  3. ALENDRONATE SODIUM [Suspect]
     Indication: OSTEOPOROSIS
     Dosage: 70 MG, QW
     Route: 048
     Dates: start: 20080521, end: 200809
  4. LANTUS [Concomitant]
     Indication: TYPE 1 DIABETES MELLITUS
     Dosage: 40 IU, UNK
  5. INSULIN HUMAN [Concomitant]
     Indication: TYPE 1 DIABETES MELLITUS
  6. LEVOTIROXINA (LEVOTHYROXINE SODIUM) [Concomitant]
     Indication: HYPOTHYROIDISM

REACTIONS (67)
  - Femur fracture [Unknown]
  - Intramedullary rod insertion [Unknown]
  - Deep vein thrombosis [Not Recovered/Not Resolved]
  - Vena cava filter insertion [Unknown]
  - Ankle fracture [Unknown]
  - Joint arthroplasty [Unknown]
  - Anaemia postoperative [Unknown]
  - Suicide attempt [Unknown]
  - Pulmonary embolism [Unknown]
  - Hyperosmolar state [Recovered/Resolved]
  - Haematuria [Recovered/Resolved]
  - Cellulitis [Unknown]
  - Sepsis [Unknown]
  - Urinary retention [Unknown]
  - Urinary tract infection [Unknown]
  - Nephrolithiasis [Unknown]
  - Neurogenic bladder [Unknown]
  - Myelitis transverse [Unknown]
  - Anaemia [Not Recovered/Not Resolved]
  - Postoperative ileus [Unknown]
  - Urinary tract infection [Unknown]
  - Tachycardia [Unknown]
  - Joint contracture [Unknown]
  - Anxiety [Unknown]
  - Diabetic vascular disorder [Unknown]
  - Fracture delayed union [Unknown]
  - Cystopexy [Unknown]
  - Depression suicidal [Not Recovered/Not Resolved]
  - Tonsillectomy [Unknown]
  - Skin ulcer [Not Recovered/Not Resolved]
  - Drug prescribing error [Unknown]
  - Supraventricular extrasystoles [Unknown]
  - Hypoxia [Unknown]
  - Chronic obstructive pulmonary disease [Not Recovered/Not Resolved]
  - Restrictive pulmonary disease [Unknown]
  - Diabetic neuropathy [Unknown]
  - Osteoarthritis [Unknown]
  - Neuralgia [Unknown]
  - Aggression [Unknown]
  - Malnutrition [Unknown]
  - Deep vein thrombosis [Unknown]
  - Pulmonary fibrosis [Unknown]
  - Connective tissue disorder [Unknown]
  - Panic disorder [Unknown]
  - Insomnia [Unknown]
  - Cardiac murmur [Unknown]
  - Pneumonia [Unknown]
  - Dehydration [Unknown]
  - Hyponatraemia [Unknown]
  - Atrophic vulvovaginitis [Unknown]
  - Dysuria [Unknown]
  - Splenomegaly [Unknown]
  - Hepatomegaly [Unknown]
  - Bladder dilatation [Unknown]
  - Pleural effusion [Unknown]
  - Kyphoscoliosis [Unknown]
  - Cellulitis [Unknown]
  - Diabetic foot [Unknown]
  - Skin ulcer [Unknown]
  - Hypertension [Unknown]
  - Arthropathy [Unknown]
  - Muscle spasms [Unknown]
  - Pyrexia [Unknown]
  - Oesophageal ulcer [Unknown]
  - Oedema peripheral [Not Recovered/Not Resolved]
  - Constipation [Unknown]
  - Pain in extremity [Unknown]
